FAERS Safety Report 6088063 (Version 16)
Quarter: 2013Q4

REPORT INFORMATION
  Report Type: Spontaneous
  Country: US (occurrence: US)
  Receive Date: 20060721
  Receipt Date: 20131110
  Transmission Date: 20140711
  Serious: Yes (Death, Hospitalization, Other)
  Sender: FDA-Public Use
  Company Number: PHEH2006US08860

PATIENT
  Age: 76 Year
  Sex: Male
  Weight: 90.7 kg

DRUGS (50)
  1. AREDIA [Suspect]
     Indication: HYPERCALCAEMIA
     Dosage: 90 MG, ONCE/SINGLE
     Dates: start: 20030509, end: 20030509
  2. AREDIA [Suspect]
     Dosage: 90 MG, QMO
     Dates: start: 20060412, end: 20060724
  3. ZOMETA [Suspect]
     Indication: HYPERCALCAEMIA
     Dosage: 4 MG, QMO
     Dates: start: 20030609, end: 200310
  4. ZOMETA [Suspect]
     Dosage: 4 MG, QMO
     Dates: start: 20031202, end: 200512
  5. ZOMETA [Suspect]
     Dosage: 3 MG, QMO
     Dates: start: 20060103, end: 200603
  6. VELCADE [Concomitant]
     Indication: PLASMA CELL MYELOMA
     Dates: start: 20030728
  7. VELCADE [Concomitant]
     Dates: start: 200504
  8. ARANESP [Concomitant]
     Indication: ANAEMIA
     Route: 058
     Dates: start: 20060426
  9. NEURONTIN [Concomitant]
     Indication: NEUROPATHY PERIPHERAL
  10. THALIDOMIDE [Concomitant]
     Indication: PLASMA CELL MYELOMA
     Route: 048
     Dates: start: 20030530
  11. DECADRON #1 [Concomitant]
     Indication: PLASMA CELL MYELOMA
     Dates: start: 20030530
  12. LASIX [Concomitant]
     Dates: start: 2003
  13. MAGNESIUM OXIDE [Concomitant]
  14. OXYCODONE [Concomitant]
  15. NITROGLYCERIN ^A.L.^ [Concomitant]
  16. ATIVAN [Concomitant]
  17. COUMADIN ^BOOTS^ [Concomitant]
  18. IMDUR [Concomitant]
  19. PROTONIX ^PHARMACIA^ [Concomitant]
  20. ASPIRIN ^BAYER^ [Concomitant]
  21. POTASSIUM [Concomitant]
  22. LISINOPRIL [Concomitant]
  23. PLAVIX [Concomitant]
  24. INSULIN [Concomitant]
  25. OXYFAST [Concomitant]
  26. MIRALAX [Concomitant]
  27. MULTIPLE VITAMINS [Concomitant]
  28. PROCRIT                            /00909301/ [Concomitant]
  29. REGLAN                                  /USA/ [Concomitant]
  30. ZOFRAN [Concomitant]
  31. AMBIEN [Concomitant]
  32. RESTORIL [Concomitant]
  33. NIFEREX (POLYSACCHARIDE-IRON COMPLEX) [Concomitant]
  34. NIASPAN [Concomitant]
  35. FUROSEMIDE [Concomitant]
  36. SENOKOT                                 /UNK/ [Concomitant]
  37. NPH INSULIN [Concomitant]
  38. NIFEDIPINE [Concomitant]
  39. HYDROCODONE [Concomitant]
  40. ZAROXOLYN [Concomitant]
  41. INSULIN ASPART [Concomitant]
  42. TEMAZEPAM [Concomitant]
  43. PHENERGAN ^WYETH-AYERST^ [Concomitant]
  44. LANTUS [Concomitant]
  45. METOPROLOL [Concomitant]
  46. PROCARDIA XL [Concomitant]
  47. PERCOCET [Concomitant]
  48. ANZEMET [Concomitant]
  49. HUMULIN [Concomitant]
  50. COLACE [Concomitant]

REACTIONS (168)
  - Vitreous floaters [Unknown]
  - Fatigue [Unknown]
  - Weight increased [Unknown]
  - Nocturia [Unknown]
  - Hearing impaired [Unknown]
  - Constipation [Unknown]
  - Intervertebral disc protrusion [Unknown]
  - Renal failure chronic [Unknown]
  - Hyponatraemia [Unknown]
  - Diverticulitis [Recovering/Resolving]
  - Skin ulcer [Recovered/Resolved]
  - Abdominal discomfort [Recovering/Resolving]
  - Nausea [Recovering/Resolving]
  - Dyspepsia [Recovering/Resolving]
  - Neoplasm malignant [Unknown]
  - Coronary artery disease [Unknown]
  - Staphylococcal bacteraemia [Unknown]
  - Endocarditis staphylococcal [Unknown]
  - Hyperlipidaemia [Unknown]
  - Anaemia [Unknown]
  - Type 2 diabetes mellitus [Unknown]
  - Neuropathy peripheral [Unknown]
  - Myocardial infarction [Unknown]
  - Dyspnoea exertional [Unknown]
  - Aortic arteriosclerosis [Unknown]
  - Peripheral vascular disorder [Unknown]
  - Intermittent claudication [Unknown]
  - Intervertebral disc degeneration [Unknown]
  - Renal artery stenosis [Unknown]
  - Cellulitis [Unknown]
  - Erythema [Unknown]
  - Tenderness [Unknown]
  - Herpes zoster [Unknown]
  - Spinal osteoarthritis [Unknown]
  - Hypotension [Unknown]
  - Dizziness [Unknown]
  - Osteopenia [Unknown]
  - Dysuria [Unknown]
  - Pollakiuria [Unknown]
  - Kidney small [Unknown]
  - Hypertension [Unknown]
  - Limb discomfort [Unknown]
  - Fall [Unknown]
  - Joint injury [Unknown]
  - Blood glucose decreased [Unknown]
  - Iron deficiency anaemia [Unknown]
  - Restlessness [Unknown]
  - Diabetic foot [Unknown]
  - Pain in jaw [Unknown]
  - Breath odour [Unknown]
  - Cough [Unknown]
  - Rales [Unknown]
  - Hypovolaemia [Unknown]
  - Tooth impacted [Unknown]
  - Odontogenic cyst [Unknown]
  - Inflammation [Unknown]
  - Upper respiratory tract infection [Unknown]
  - Eye irritation [Unknown]
  - Bradycardia [Recovered/Resolved]
  - Intervertebral disc disorder [Unknown]
  - Left ventricular hypertrophy [Unknown]
  - Diastolic dysfunction [Unknown]
  - Deep vein thrombosis [Unknown]
  - Cardiomegaly [Unknown]
  - Hypercalcaemia of malignancy [Unknown]
  - Gastrooesophageal reflux disease [Unknown]
  - Lung infiltration [Unknown]
  - Interstitial lung disease [Unknown]
  - Pulmonary oedema [Unknown]
  - Septic shock [Unknown]
  - Haematoma [Unknown]
  - Syncope [Unknown]
  - Autonomic nervous system imbalance [Unknown]
  - Peripheral artery stenosis [Unknown]
  - Procedural haemorrhage [Unknown]
  - Mitral valve incompetence [Unknown]
  - Aortic valve sclerosis [Unknown]
  - Vascular calcification [Unknown]
  - Skin lesion [Unknown]
  - Wrist fracture [Unknown]
  - Mental status changes [Unknown]
  - Compression fracture [Unknown]
  - Vertebral foraminal stenosis [Unknown]
  - Metabolic acidosis [Unknown]
  - Left atrial dilatation [Unknown]
  - Tricuspid valve incompetence [Unknown]
  - Cerebral atrophy [Unknown]
  - Pulmonary fibrosis [Unknown]
  - Orthostatic hypotension [Unknown]
  - Ligament rupture [Unknown]
  - Musculoskeletal pain [Unknown]
  - Arthritis [Unknown]
  - Ecchymosis [Unknown]
  - Pain in extremity [Unknown]
  - Hypomagnesaemia [Unknown]
  - Gait disturbance [Unknown]
  - Diabetic gastroparesis [Unknown]
  - Bone pain [Unknown]
  - Pulmonary mass [Unknown]
  - Depression [Unknown]
  - Confusional state [Unknown]
  - Rib fracture [Unknown]
  - Insomnia [Unknown]
  - Buccal mucosal roughening [Unknown]
  - Stomatitis [Unknown]
  - Oral pain [Unknown]
  - Tooth loss [Unknown]
  - Oedema mucosal [Unknown]
  - Facial pain [Unknown]
  - Oropharyngeal pain [Unknown]
  - Pathological fracture [Unknown]
  - Dehydration [Unknown]
  - Tooth fracture [Unknown]
  - Mouth ulceration [Unknown]
  - Hypokalaemia [Unknown]
  - Wound [Unknown]
  - Musculoskeletal chest pain [Unknown]
  - Scoliosis [Unknown]
  - Spondylolisthesis [Unknown]
  - Facet joint syndrome [Unknown]
  - Vertebral osteophyte [Unknown]
  - Urinary retention [Unknown]
  - Dyslipidaemia [Unknown]
  - Erectile dysfunction [Unknown]
  - Asthenia [Unknown]
  - Death [Fatal]
  - Endocarditis [Recovered/Resolved]
  - Septic embolus [Unknown]
  - Ulcer [Unknown]
  - Pneumonia [Unknown]
  - Angina pectoris [Unknown]
  - Intestinal ischaemia [Unknown]
  - Abdominal pain [Unknown]
  - Peroneal nerve palsy [Unknown]
  - Osteonecrosis of jaw [Unknown]
  - Injury [Unknown]
  - Bone disorder [Unknown]
  - Jaw disorder [Unknown]
  - Oral cavity fistula [Unknown]
  - Purulence [Unknown]
  - Primary sequestrum [Unknown]
  - Gingival pain [Unknown]
  - Gingivitis [Unknown]
  - Oral discomfort [Unknown]
  - Pain [Unknown]
  - Anxiety [Unknown]
  - Plasma cell myeloma [Not Recovered/Not Resolved]
  - Muscular weakness [Not Recovered/Not Resolved]
  - Back pain [Not Recovered/Not Resolved]
  - Blood creatinine increased [Recovered/Resolved]
  - Mouth cyst [Unknown]
  - Arthralgia [Unknown]
  - Diarrhoea [Recovering/Resolving]
  - Posterior capsule opacification [Unknown]
  - Cataract [Unknown]
  - Decubitus ulcer [Recovering/Resolving]
  - Headache [Unknown]
  - Aortic aneurysm [Unknown]
  - Dysphagia [Unknown]
  - Diverticulum intestinal [Unknown]
  - Cardiac failure congestive [Unknown]
  - Oedema peripheral [Unknown]
  - Myocardial ischaemia [Unknown]
  - Arteriosclerosis [Unknown]
  - Pulmonary hypertension [Unknown]
  - Hypercalcaemia [Unknown]
  - Diabetic retinopathy [Unknown]
  - Presbyopia [Unknown]
